FAERS Safety Report 4275075-3 (Version None)
Quarter: 2004Q1

REPORT INFORMATION
  Report Type: 
  Country: None (occurrence: None)
  Receive Date: 20040116
  Receipt Date: 20040108
  Transmission Date: 20041129
  Serious: Yes (Other)
  Sender: FDA-Public Use
  Company Number: 2004193238JP

PATIENT
  Age: 90 Year
  Sex: Male

DRUGS (1)
  1. ALDACTONE [Suspect]
     Dosage: SEE IMAGE
     Route: 048
     Dates: start: 20031222

REACTIONS (5)
  - ALANINE AMINOTRANSFERASE INCREASED [None]
  - ASPARTATE AMINOTRANSFERASE INCREASED [None]
  - BLOOD ALKALINE PHOSPHATASE INCREASED [None]
  - LIVER DISORDER [None]
  - UPPER GASTROINTESTINAL HAEMORRHAGE [None]
